FAERS Safety Report 7268619-0 (Version None)
Quarter: 2010Q4

REPORT INFORMATION
  Report Type: 
  Country: None (occurrence: None)
  Receive Date: 20101206
  Receipt Date: 20100921
  Transmission Date: 20110411
  Serious: No
  Sender: FDA-Public Use
  Company Number: 2010SP050975

PATIENT
  Age: 43 Year
  Sex: Female

DRUGS (4)
  1. SAPHRIS [Suspect]
     Indication: PRODUCT USED FOR UNKNOWN INDICATION
     Dosage: 10 MG; BID ; SL
     Route: 060
  2. VALIUM [Concomitant]
  3. PROPRANOLOL [Concomitant]
  4. PERIACTIN [Concomitant]

REACTIONS (2)
  - MYALGIA [None]
  - PAIN [None]
